FAERS Safety Report 15700504 (Version 1)
Quarter: 2018Q4

REPORT INFORMATION
  Report Type: Spontaneous
  Country: US (occurrence: US)
  Receive Date: 20181207
  Receipt Date: 20181207
  Transmission Date: 20190205
  Serious: Yes (Other)
  Sender: FDA-Public Use
  Company Number: US-PFIZER INC-2018500326

PATIENT

DRUGS (1)
  1. EPINEPHRINE. [Suspect]
     Active Substance: EPINEPHRINE
     Dosage: UNK (ERRONEOUS PREPARATION AND INJECTION OF 1:1000)

REACTIONS (4)
  - Hypertension [Unknown]
  - Pulmonary oedema [Unknown]
  - Wrong product administered [Unknown]
  - Incorrect route of product administration [Unknown]
